FAERS Safety Report 4621930-1 (Version None)
Quarter: 2005Q1

REPORT INFORMATION
  Report Type: 
  Country: None (occurrence: None)
  Receive Date: 20050328
  Receipt Date: 20050310
  Transmission Date: 20050727
  Serious: Yes (Death, Hospitalization)
  Sender: FDA-Public Use
  Company Number: 186019

PATIENT
  Age: 62 Year
  Sex: Female

DRUGS (15)
  1. AVONEX [Suspect]
     Indication: MULTIPLE SCLEROSIS
     Dosage: 30 UG; QW; IM
     Route: 030
     Dates: start: 20010114
  2. SYMMETREL [Concomitant]
  3. LIORESAL [Concomitant]
  4. CREON 10 [Concomitant]
  5. NEURONTIN [Concomitant]
  6. DETROL [Concomitant]
  7. FISH OIL [Concomitant]
  8. MULTI-VITAMIN [Concomitant]
  9. ASPIRIN [Concomitant]
  10. NICOTINE TRANSDERMAL PATCH [Concomitant]
  11. ZOCOR [Concomitant]
  12. PLAVIX [Concomitant]
  13. TENORMIN [Concomitant]
  14. ALTACE [Concomitant]
  15. PERCOCET [Concomitant]

REACTIONS (7)
  - CHRONIC OBSTRUCTIVE PULMONARY DISEASE [None]
  - CORONARY ARTERY DISEASE [None]
  - HAEMORRHAGE [None]
  - MYOCARDIAL INFARCTION [None]
  - PERIPHERAL OCCLUSIVE DISEASE [None]
  - VENOUS INSUFFICIENCY [None]
  - WOUND [None]
